FAERS Safety Report 8366908-X (Version None)
Quarter: 2012Q2

REPORT INFORMATION
  Report Type: 
  Country: None (occurrence: None)
  Receive Date: 20120517
  Receipt Date: 20120508
  Transmission Date: 20120825
  Serious: Yes (Other)
  Sender: FDA-Public Use
  Company Number: US-ASTRAZENECA-2012SE29872

PATIENT
  Age: 62 Year
  Sex: Female

DRUGS (8)
  1. NAPROXEN (ALEVE) [Concomitant]
     Route: 048
  2. GABAPENTIN [Concomitant]
     Route: 048
  3. GLIPIZIDE [Concomitant]
     Route: 048
  4. GABAPENTIN [Concomitant]
     Route: 048
  5. JANUVIA [Concomitant]
     Route: 048
  6. GABAPENTIN [Concomitant]
     Route: 048
  7. METFORMIN HCL [Concomitant]
     Route: 048
  8. ANASTROZOLE [Suspect]
     Route: 048

REACTIONS (7)
  - VERTIGO POSITIONAL [None]
  - BREAST CANCER FEMALE [None]
  - RADIUS FRACTURE [None]
  - NEUROPATHY PERIPHERAL [None]
  - DIABETES MELLITUS [None]
  - PAIN IN EXTREMITY [None]
  - METASTASES TO BONE [None]
